FAERS Safety Report 13394286 (Version 1)
Quarter: 2017Q2

REPORT INFORMATION
  Report Type: Spontaneous
  Country: IT (occurrence: IT)
  Receive Date: 20170402
  Receipt Date: 20170402
  Transmission Date: 20170830
  Serious: Yes (Hospitalization, Other)
  Sender: FDA-Public Use
  Company Number: IT-MYLANLABS-2017M1019888

PATIENT

DRUGS (2)
  1. FOLATE [Concomitant]
     Active Substance: FOLATE SODIUM
     Indication: MYELOFIBROSIS
     Dosage: 1 MG, QD
  2. LEVOFLOXACIN. [Suspect]
     Active Substance: LEVOFLOXACIN
     Indication: URINARY TRACT INFECTION
     Dosage: 500 MG, QD
     Route: 048

REACTIONS (5)
  - Rash erythematous [Recovered/Resolved]
  - Hypersensitivity vasculitis [Recovered/Resolved]
  - Oliguria [Recovered/Resolved]
  - Acute kidney injury [Recovered/Resolved]
  - Palpable purpura [Recovered/Resolved]
